FAERS Safety Report 13583040 (Version 1)
Quarter: 2017Q2

REPORT INFORMATION
  Report Type: Spontaneous
  Country: US (occurrence: US)
  Receive Date: 20170525
  Receipt Date: 20170525
  Transmission Date: 20170830
  Serious: No
  Sender: FDA-Public Use
  Company Number: US-ACTELION-A-US2017-154279

PATIENT
  Age: 38 Year
  Sex: Male

DRUGS (3)
  1. AMBRISENTAN [Suspect]
     Active Substance: AMBRISENTAN
     Indication: PRODUCT USED FOR UNKNOWN INDICATION
     Dosage: 10 MG, QD
     Route: 065
     Dates: start: 20170120
  2. UPTRAVI [Suspect]
     Active Substance: SELEXIPAG
     Indication: PRODUCT USED FOR UNKNOWN INDICATION
     Route: 048
  3. REVATIO [Concomitant]
     Active Substance: SILDENAFIL CITRATE

REACTIONS (12)
  - Growing pains [Unknown]
  - Restless legs syndrome [Unknown]
  - Pain in extremity [Unknown]
  - Oedema peripheral [Unknown]
  - Flushing [Unknown]
  - Head discomfort [Unknown]
  - Sinusitis [Unknown]
  - Headache [Unknown]
  - Insomnia [Unknown]
  - Injury [Unknown]
  - Fluid retention [Unknown]
  - Migraine [Unknown]
